FAERS Safety Report 14076116 (Version 4)
Quarter: 2018Q4

REPORT INFORMATION
  Report Type: Spontaneous
  Country: US (occurrence: US)
  Receive Date: 20171011
  Receipt Date: 20181112
  Transmission Date: 20190204
  Serious: Yes (Other)
  Sender: FDA-Public Use
  Company Number: US-PFIZER INC-2017432958

PATIENT
  Age: 63 Year
  Sex: Female

DRUGS (22)
  1. TIZANIDINE. [Concomitant]
     Active Substance: TIZANIDINE
     Dosage: 4 MG, 1X/DAY
     Route: 048
  2. LOSARTAN AND HYDROCHLOROTHIAZIDE [Concomitant]
     Active Substance: HYDROCHLOROTHIAZIDE\LOSARTAN POTASSIUM
     Dosage: 1 DF, 1X/DAY [HYDROCHLOROTHIAZIDE: 12.5 MG, LOSARTAN POTASSIUM: 100 MG]
  3. LOPRESSOR [Concomitant]
     Active Substance: METOPROLOL TARTRATE
     Dosage: 50 MG, 1X/DAY
     Route: 048
  4. CALCIUM 600+D [Concomitant]
     Active Substance: CALCIUM\VITAMIN D
     Dosage: 1 DF, 3X/DAY [CALCIUM CARBONATE: 600 MG/COLECALCIFEROL: 200 UNITS]
     Route: 048
  5. PREDNISONE. [Concomitant]
     Active Substance: PREDNISONE
     Dosage: 10 MG, DAILY
  6. LYRICA [Suspect]
     Active Substance: PREGABALIN
     Indication: TYPE 2 DIABETES MELLITUS
  7. ZYRTEC [Concomitant]
     Active Substance: CETIRIZINE HYDROCHLORIDE
     Dosage: 10 MG, 1X/DAY
     Route: 048
  8. SINGULAIR [Concomitant]
     Active Substance: MONTELUKAST SODIUM
     Dosage: 10 MG, 1X/DAY (IN THE EVENING)
     Route: 048
  9. PROLIA [Concomitant]
     Active Substance: DENOSUMAB
     Dosage: 60 MG, UNK
     Route: 030
     Dates: start: 201703
  10. ASPIR 81 [Concomitant]
     Dosage: 81 MG, ALTERNATE DAY
     Route: 048
  11. HUMIRA [Concomitant]
     Active Substance: ADALIMUMAB
     Dosage: UNK 40MG/0.8ML (EVERY 2 WEEKS)
     Route: 058
  12. HYDROXYCHLOROQUINE [Concomitant]
     Active Substance: HYDROXYCHLOROQUINE
     Dosage: 400 MG, DAILY
     Route: 048
  13. ACETAMINOPHEN W/HYDROCODONE [Concomitant]
     Active Substance: ACETAMINOPHEN\HYDROCODONE
     Dosage: 1 DF, 4X/DAY[ACETAMINOPHEN: 325 MG/HYDROCODONE: 10 MG]
     Route: 048
  14. PREDNISONE. [Concomitant]
     Active Substance: PREDNISONE
     Dosage: UNK 5 MG TO 30 MG
  15. SYNTHROID [Concomitant]
     Active Substance: LEVOTHYROXINE SODIUM
     Dosage: 88 UG, 1X/DAY
     Route: 048
  16. PREDNISONE. [Concomitant]
     Active Substance: PREDNISONE
     Dosage: 5 MG, 1X/DAY
  17. PREDNISONE. [Concomitant]
     Active Substance: PREDNISONE
     Dosage: 20 MG, DAILY
  18. METOPROLOL. [Concomitant]
     Active Substance: METOPROLOL
     Dosage: 50 MG, 2X/DAY
     Route: 048
  19. LYRICA [Suspect]
     Active Substance: PREGABALIN
     Indication: DIABETIC NEUROPATHY
     Dosage: 75 MG, 2X/DAY
     Route: 048
  20. CYMBALTA [Concomitant]
     Active Substance: DULOXETINE HYDROCHLORIDE
     Dosage: 60 MG, 1X/DAY
     Route: 048
  21. IPRATROPIUM [Concomitant]
     Active Substance: IPRATROPIUM
     Dosage: UNK, 4X/DAY(2 SPRAYS NASAL, 4 TIMES A DAY)
     Route: 045
  22. OMEPRAZOLE. [Concomitant]
     Active Substance: OMEPRAZOLE
     Dosage: 20 MG, 1X/DAY
     Route: 048

REACTIONS (12)
  - Dry mouth [Unknown]
  - Confusional state [Unknown]
  - Fatigue [Unknown]
  - Dyspnoea [Recovered/Resolved]
  - Product use issue [Unknown]
  - Dry eye [Unknown]
  - Hypoaesthesia [Unknown]
  - Blood pressure increased [Unknown]
  - Raynaud^s phenomenon [Unknown]
  - Memory impairment [Unknown]
  - Adrenal insufficiency [Unknown]
  - Paraesthesia [Unknown]
